FAERS Safety Report 10433609 (Version 1)
Quarter: 2014Q3

REPORT INFORMATION
  Report Type: Report from Study
  Country: US (occurrence: US)
  Receive Date: 20140905
  Receipt Date: 20140905
  Transmission Date: 20150326
  Serious: Yes (Death)
  Sender: FDA-Public Use
  Company Number: PHEH2014US017661

PATIENT
  Age: 73 Year
  Sex: Male

DRUGS (8)
  1. LIPITOR [Concomitant]
     Active Substance: ATORVASTATIN CALCIUM
     Dosage: UNK UKN, UNK
  2. ACTOS [Concomitant]
     Active Substance: PIOGLITAZONE HYDROCHLORIDE
     Dosage: UNK UKN, UNK
  3. METFORMIN HYDROCHLORIDE + GLYBURIDE [Concomitant]
     Dosage: UNK UKN, UNK
  4. JANUVIA [Concomitant]
     Active Substance: SITAGLIPTIN PHOSPHATE
     Dosage: UNK UKN, UNK
  5. NEXIUM [Concomitant]
     Active Substance: ESOMEPRAZOLE MAGNESIUM
     Dosage: UNK UKN, UNK
  6. FUROSEMIDE. [Concomitant]
     Active Substance: FUROSEMIDE
     Dosage: UNK UKN, UNK
  7. QUINAPRIL [Concomitant]
     Active Substance: QUINAPRIL\QUINAPRIL HYDROCHLORIDE
     Dosage: UNK UKN, UNK
  8. GLEEVEC [Suspect]
     Active Substance: IMATINIB MESYLATE
     Indication: ABDOMINAL NEOPLASM
     Dosage: 400 MG, DAILY
     Route: 048
     Dates: start: 20110606

REACTIONS (1)
  - Death [Fatal]

NARRATIVE: CASE EVENT DATE: 20140713
